FAERS Safety Report 8014905-6 (Version None)
Quarter: 2011Q4

REPORT INFORMATION
  Report Type: 
  Country: None (occurrence: None)
  Receive Date: 20111229
  Receipt Date: 20111222
  Transmission Date: 20120403
  Serious: Yes (Hospitalization)
  Sender: FDA-Public Use
  Company Number: FR-ABBOTT-11P-056-0886079-00

PATIENT
  Age: 80 Year
  Sex: Male

DRUGS (2)
  1. CLARITHROMYCIN [Suspect]
     Indication: ATYPICAL MYCOBACTERIAL INFECTION
     Dates: start: 20101112
  2. RIFABUTIN [Suspect]
     Indication: ATYPICAL MYCOBACTERIAL INFECTION
     Route: 048
     Dates: start: 20101112, end: 20101124

REACTIONS (6)
  - NEUTROPENIA [None]
  - HYPERSENSITIVITY [None]
  - TRANSAMINASES INCREASED [None]
  - PRURITUS [None]
  - ERYTHEMA MULTIFORME [None]
  - PYREXIA [None]
